FAERS Safety Report 17245259 (Version 1)
Quarter: 2020Q1

REPORT INFORMATION
  Report Type: Spontaneous
  Country: IT (occurrence: IT)
  Receive Date: 20200108
  Receipt Date: 20200108
  Transmission Date: 20200409
  Serious: Yes (Hospitalization)
  Sender: FDA-Public Use
  Company Number: IT-REGULIS-2078640

PATIENT
  Age: 4 Year
  Sex: Male

DRUGS (1)
  1. METHYLENE BLUE. [Suspect]
     Active Substance: METHYLENE BLUE
     Indication: BLOOD METHAEMOGLOBIN
     Route: 040
     Dates: start: 20191216, end: 20191216

REACTIONS (2)
  - Oxygen saturation decreased [Recovering/Resolving]
  - Bradypnoea [Recovering/Resolving]

NARRATIVE: CASE EVENT DATE: 20191216
